FAERS Safety Report 5614617-X (Version None)
Quarter: 2008Q1

REPORT INFORMATION
  Report Type: 
  Country: None (occurrence: None)
  Receive Date: 20080131
  Receipt Date: 20080123
  Transmission Date: 20080703
  Serious: Yes (Other)
  Sender: FDA-Public Use
  Company Number: TAP2008Q00099

PATIENT
  Sex: Female

DRUGS (1)
  1. LUPRON DEPOT-3 [Suspect]
     Indication: DRUG USE FOR UNKNOWN INDICATION
     Dosage: 11.25 MG, 1 IN 3 M, INTRAMUSCULAR
     Route: 030
     Dates: start: 20071101

REACTIONS (3)
  - ABORTION SPONTANEOUS [None]
  - DRUG EXPOSURE DURING PREGNANCY [None]
  - ECTOPIC PREGNANCY [None]
